FAERS Safety Report 23655976 (Version 1)
Quarter: 2024Q1

REPORT INFORMATION
  Report Type: Spontaneous
  Country: DE (occurrence: None)
  Receive Date: 20240321
  Receipt Date: 20240321
  Transmission Date: 20240410
  Serious: Yes (Other)
  Sender: FDA-Public Use
  Company Number: 2024A062849

PATIENT
  Age: 70 Year
  Sex: Female

DRUGS (14)
  1. QUETIAPINE [Suspect]
     Active Substance: QUETIAPINE
     Indication: Anxiety
     Dosage: 2 ? 25 MG FILM-COATED TABLETS FOR 3 DAYS
  2. QUETIAPINE [Suspect]
     Active Substance: QUETIAPINE
     Indication: Depression
     Dosage: 2 ? 25 MG FILM-COATED TABLETS FOR 3 DAYS
  3. QUETIAPINE [Suspect]
     Active Substance: QUETIAPINE
     Indication: Sleep disorder
     Dosage: 2 ? 25 MG FILM-COATED TABLETS FOR 3 DAYS
  4. QUETIAPINE [Suspect]
     Active Substance: QUETIAPINE
     Indication: Anxiety
     Dosage: 3 ? 25 MG
  5. QUETIAPINE [Suspect]
     Active Substance: QUETIAPINE
     Indication: Depression
     Dosage: 3 ? 25 MG
  6. QUETIAPINE [Suspect]
     Active Substance: QUETIAPINE
     Indication: Sleep disorder
     Dosage: 3 ? 25 MG
  7. QUETIAPINE [Suspect]
     Active Substance: QUETIAPINE
     Indication: Anxiety
     Dosage: 25 MG; 0.33 - DAILY
     Dates: start: 2023
  8. QUETIAPINE [Suspect]
     Active Substance: QUETIAPINE
     Indication: Depression
     Dosage: 25 MG; 0.33 - DAILY
     Dates: start: 2023
  9. QUETIAPINE [Suspect]
     Active Substance: QUETIAPINE
     Indication: Sleep disorder
     Dosage: 25 MG; 0.33 - DAILY
     Dates: start: 2023
  10. ALPRAZOLAM [Suspect]
     Active Substance: ALPRAZOLAM
  11. DIAZEPAM [Suspect]
     Active Substance: DIAZEPAM
  12. ASPIRIN [Concomitant]
     Active Substance: ASPIRIN
  13. BISOPROLOL [Concomitant]
     Active Substance: BISOPROLOL\BISOPROLOL FUMARATE
  14. LEVOTHYROXINE SODIUM [Concomitant]
     Active Substance: LEVOTHYROXINE SODIUM

REACTIONS (10)
  - Drug dependence [Unknown]
  - Depression [Unknown]
  - Psychiatric symptom [Unknown]
  - Nausea [Unknown]
  - Sluggishness [Unknown]
  - Mood altered [Unknown]
  - Withdrawal syndrome [Unknown]
  - Crying [Unknown]
  - Hyperhidrosis [Unknown]
  - Adverse event [Unknown]
